FAERS Safety Report 10995138 (Version 1)
Quarter: 2015Q2

REPORT INFORMATION
  Report Type: Spontaneous
  Country: US (occurrence: US)
  Receive Date: 20150407
  Receipt Date: 20150407
  Transmission Date: 20150821
  Serious: No
  Sender: FDA-Public Use
  Company Number: US-ELI_LILLY_AND_COMPANY-US201503007737

PATIENT
  Sex: Female

DRUGS (2)
  1. FORTEO [Suspect]
     Active Substance: TERIPARATIDE
     Indication: OSTEOPOROSIS
     Dosage: UNK, QD
     Route: 065
     Dates: start: 201501
  2. MORPHINE [Concomitant]
     Active Substance: MORPHINE
     Indication: SPINAL FRACTURE

REACTIONS (4)
  - Influenza like illness [Unknown]
  - Malaise [Unknown]
  - Bone pain [Unknown]
  - Pain [Unknown]
